FAERS Safety Report 7241819-1 (Version None)
Quarter: 2011Q1

REPORT INFORMATION
  Report Type: 
  Country: None (occurrence: None)
  Receive Date: 20110114
  Receipt Date: 20110103
  Transmission Date: 20110831
  Serious: Yes (Hospitalization)
  Sender: FDA-Public Use
  Company Number: LEO-2011-00007

PATIENT
  Age: 85 Year
  Sex: Female

DRUGS (3)
  1. BI PRETERAX (INDAPAMIDE, PERINDOPRIL ERBUMINE) [Concomitant]
  2. INNOHEP [Suspect]
     Indication: DEEP VEIN THROMBOSIS
     Dosage: 14000 IU (14000 IU, 1 IN 1 D), SUBCUTANEOUS
     Route: 058
     Dates: start: 20100918, end: 20100921
  3. KARDEGIC (ACETYLSALICYLATE LYSINE) [Suspect]
     Indication: PRODUCT USED FOR UNKNOWN INDICATION
     Dosage: ORAL
     Route: 048
     Dates: end: 20080926

REACTIONS (3)
  - HEPARIN-INDUCED THROMBOCYTOPENIA [None]
  - PULMONARY EMBOLISM [None]
  - DEEP VEIN THROMBOSIS [None]
